FAERS Safety Report 9391482 (Version 2)
Quarter: 2013Q4

REPORT INFORMATION
  Report Type: Spontaneous
  Country: US (occurrence: US)
  Receive Date: 20130709
  Receipt Date: 20131002
  Transmission Date: 20140711
  Serious: Yes (Hospitalization, Other)
  Sender: FDA-Public Use
  Company Number: US-ASTRAZENECA-2013SE50045

PATIENT
  Age: 58 Year
  Sex: Male
  Weight: 73.9 kg

DRUGS (7)
  1. NEXIUM [Suspect]
     Indication: GASTROOESOPHAGEAL REFLUX DISEASE
     Route: 048
     Dates: start: 2005, end: 2010
  2. NEXIUM [Suspect]
     Indication: GASTROOESOPHAGEAL REFLUX DISEASE
     Route: 048
     Dates: end: 201301
  3. NEXIUM IV [Suspect]
     Route: 042
     Dates: start: 2010
  4. UNSPECIFIED ANTIBIOTIC [Suspect]
     Route: 065
  5. DIAZEPAM [Concomitant]
     Indication: MUSCLE SPASMS
  6. ALEVE [Concomitant]
  7. ULTRAM [Concomitant]
     Indication: PAIN
     Dosage: PRN
     Route: 048

REACTIONS (5)
  - Ulcer haemorrhage [Recovered/Resolved]
  - Chest pain [Unknown]
  - Burning sensation [Unknown]
  - Ulcer [Unknown]
  - Intentional drug misuse [Recovered/Resolved]
